FAERS Safety Report 19846763 (Version 1)
Quarter: 2021Q3

REPORT INFORMATION
  Report Type: Spontaneous
  Country: JP (occurrence: JP)
  Receive Date: 20210917
  Receipt Date: 20210917
  Transmission Date: 20211014
  Serious: Yes (Hospitalization, Other)
  Sender: FDA-Public Use
  Company Number: JP-INDOCO-000220

PATIENT
  Age: 65 Year
  Sex: Female

DRUGS (4)
  1. AZATHIOPRINE. [Interacting]
     Active Substance: AZATHIOPRINE
     Indication: AUTOIMMUNE HEPATITIS
     Dosage: 1 MG PER KG BODY WEIGHT
  2. URSODEOXYCHOLATE SODIUM/URSODEOXYCHOLIC ACID [Concomitant]
     Active Substance: URSODIOL
  3. PREDNISOLONE. [Concomitant]
     Active Substance: PREDNISOLONE
     Dosage: (0.6 MG PER KG PER DAY) AND WAS GRADUALLY TAPERED.
  4. ALLOPURINOL. [Suspect]
     Active Substance: ALLOPURINOL
     Indication: HYPERURICAEMIA

REACTIONS (7)
  - Drug level increased [Unknown]
  - Alopecia [Recovered/Resolved]
  - Mouth ulceration [Unknown]
  - Myelosuppression [Unknown]
  - Purpura [Unknown]
  - Drug interaction [Unknown]
  - Stomatitis [Recovered/Resolved]
